FAERS Safety Report 7898377-8 (Version None)
Quarter: 2011Q4

REPORT INFORMATION
  Report Type: 
  Country: None (occurrence: None)
  Receive Date: 20111107
  Receipt Date: 20111102
  Transmission Date: 20120403
  Serious: Yes (Hospitalization)
  Sender: FDA-Public Use
  Company Number: DE-BAYER-2011-098927

PATIENT
  Age: 52 Year
  Sex: Female
  Weight: 56 kg

DRUGS (6)
  1. BLINDED SORAFENIB (RAF KINASE INHIBITOR) [Suspect]
     Indication: ACUTE MYELOID LEUKAEMIA
     Dosage: UNK
     Route: 048
     Dates: start: 20101221, end: 20110919
  2. MAGNESIUM VERLA [Concomitant]
     Indication: MINERAL SUPPLEMENTATION
     Dosage: 40 MG, TID
     Dates: start: 20110915
  3. IMMUNOSUPPRESSIVE AGENTS [Concomitant]
  4. PANTOPRAZOLE [Concomitant]
     Indication: PROPHYLAXIS AGAINST GASTROINTESTINAL ULCER
     Dosage: DAILY DOSE 40 MG
     Dates: start: 20100415
  5. CALCIUM CARBONATE [Concomitant]
     Indication: PROPHYLAXIS
     Dosage: 500 MG, TID
     Dates: start: 20110915
  6. CALCIUM CARBONATE [Concomitant]
     Indication: OSTEOPOROSIS PROPHYLAXIS

REACTIONS (2)
  - PALMAR-PLANTAR ERYTHRODYSAESTHESIA SYNDROME [None]
  - GRAFT VERSUS HOST DISEASE IN SKIN [None]
